FAERS Safety Report 5662799-6 (Version None)
Quarter: 2008Q1

REPORT INFORMATION
  Report Type: 
  Country: None (occurrence: None)
  Receive Date: 20080313
  Receipt Date: 20080305
  Transmission Date: 20080703
  Serious: Yes (Death)
  Sender: FDA-Public Use
  Company Number: US-GENENTECH-251633

PATIENT
  Sex: Male
  Weight: 64.399 kg

DRUGS (7)
  1. BEVACIZUMAB [Suspect]
     Indication: NON-SMALL CELL LUNG CANCER
     Dosage: 15 MG/KG, Q3W
     Route: 042
     Dates: start: 20070827
  2. TAXOL [Concomitant]
     Indication: NON-SMALL CELL LUNG CANCER
     Dosage: 195 MG, UNK
     Route: 042
     Dates: start: 20070827
  3. CARBOPLATIN [Concomitant]
     Indication: NON-SMALL CELL LUNG CANCER
     Dosage: 151 MG, UNK
     Route: 042
     Dates: start: 20070827
  4. ZOMETA [Concomitant]
     Indication: METASTASES TO BONE
     Dosage: 4 MG, 1/MONTH
     Route: 042
     Dates: start: 20070827
  5. MAGNESIUM SULFATE [Concomitant]
     Indication: HYPOMAGNESAEMIA
     Dosage: 1 G, PRN
     Route: 042
     Dates: start: 20070904
  6. PROCRIT [Concomitant]
     Indication: ANAEMIA
     Dosage: 40000 UNIT, 1/WEEK
     Route: 058
     Dates: start: 20071010
  7. NEULASTA [Concomitant]
     Indication: WHITE BLOOD CELL COUNT DECREASED
     Dosage: 6 MG, PRN
     Route: 058
     Dates: start: 20071010

REACTIONS (1)
  - DEATH [None]
